FAERS Safety Report 11090683 (Version 1)
Quarter: 2015Q2

REPORT INFORMATION
  Report Type: Spontaneous
  Country: US (occurrence: US)
  Receive Date: 20150505
  Receipt Date: 20150505
  Transmission Date: 20150821
  Serious: Yes (Other)
  Sender: FDA-Public Use
  Company Number: US-PFIZER INC-2015145805

PATIENT
  Age: 84 Year
  Sex: Female
  Weight: 70.3 kg

DRUGS (1)
  1. PREMARIN [Suspect]
     Active Substance: ESTROGENS, CONJUGATED
     Indication: INFECTION PROPHYLAXIS
     Dosage: 0.625 MG, 2X/WEEK

REACTIONS (2)
  - Product use issue [Unknown]
  - Urinary tract disorder [Unknown]
